FAERS Safety Report 17530802 (Version 1)
Quarter: 2020Q1

REPORT INFORMATION
  Report Type: Spontaneous
  Country: US (occurrence: US)
  Receive Date: 20200312
  Receipt Date: 20200312
  Transmission Date: 20200409
  Serious: No
  Sender: FDA-Public Use
  Company Number: US-GLAXOSMITHKLINE-US2020037889

PATIENT
  Sex: Male

DRUGS (1)
  1. ROPINIROLE PROLONGED-RELEASE TABLET [Suspect]
     Active Substance: ROPINIROLE
     Indication: PARKINSON^S DISEASE
     Dosage: 1 DF, QD, TOOK THE MEDICATION ONCE DAILY
     Route: 065

REACTIONS (1)
  - Drug ineffective [Unknown]
